FAERS Safety Report 4342329-1 (Version None)
Quarter: 2004Q2

REPORT INFORMATION
  Report Type: 
  Country: None (occurrence: None)
  Receive Date: 20040420
  Receipt Date: 20040420
  Transmission Date: 20050107
  Serious: Yes (Hospitalization)
  Sender: FDA-Public Use
  Company Number: None

PATIENT
  Age: 54 Year
  Sex: Male

DRUGS (2)
  1. LITHIUM [Suspect]
     Indication: BIPOLAR DISORDER
     Dosage: 450 MG PO TID
     Route: 048
  2. RISPERIDONE [Suspect]
     Dosage: 1.5 MG PO QHS
     Route: 048

REACTIONS (4)
  - ANXIETY [None]
  - DYSPHAGIA [None]
  - TREMOR [None]
  - VISION BLURRED [None]
